FAERS Safety Report 6433549-0 (Version None)
Quarter: 2009Q4

REPORT INFORMATION
  Report Type: 
  Country: None (occurrence: None)
  Receive Date: 20091110
  Receipt Date: 20091030
  Transmission Date: 20100525
  Serious: Yes (Other)
  Sender: FDA-Public Use
  Company Number: US-BAXTER-2009BH016757

PATIENT
  Age: 70 Year
  Sex: Male

DRUGS (9)
  1. GAMMAGARD LIQUID [Suspect]
     Indication: CHRONIC INFLAMMATORY DEMYELINATING POLYRADICULONEUROPATHY
     Route: 042
     Dates: start: 20040401
  2. GAMMAGARD LIQUID [Suspect]
     Indication: OFF LABEL USE
     Route: 042
     Dates: start: 20040401
  3. ASPIRIN [Concomitant]
     Route: 048
  4. PREDNISONE [Concomitant]
     Route: 048
  5. PROVENTIL-HFA [Concomitant]
     Indication: ASTHMA
     Route: 055
  6. FISH OIL [Concomitant]
     Route: 048
  7. VERAPAMIL [Concomitant]
     Route: 048
  8. HYDROCHLOROTHIAZIDE [Concomitant]
     Route: 048
  9. TAMSULOSIN HYDROCHLORIDE [Concomitant]
     Indication: ASTHMA
     Route: 055

REACTIONS (6)
  - ASTHENIA [None]
  - DIARRHOEA [None]
  - DYSURIA [None]
  - KIDNEY INFECTION [None]
  - NAUSEA [None]
  - PYREXIA [None]
